FAERS Safety Report 6649033-5 (Version None)
Quarter: 2010Q1

REPORT INFORMATION
  Report Type: 
  Country: None (occurrence: None)
  Receive Date: 20100319
  Receipt Date: 20100309
  Transmission Date: 20100710
  Serious: Yes (Life-Threatening, Hospitalization, Other)
  Sender: FDA-Public Use
  Company Number: 015283

PATIENT
  Age: 52 Year
  Sex: Male

DRUGS (5)
  1. PRIALT [Suspect]
     Indication: NEURALGIA
     Dosage: INTRATHECAL ; 0.291 UG, ONCE/HOUR, INTRATHECAL
     Route: 037
     Dates: start: 20090501, end: 20090801
  2. PRIALT [Suspect]
     Indication: NEURALGIA
     Dosage: INTRATHECAL ; 0.291 UG, ONCE/HOUR, INTRATHECAL
     Route: 037
     Dates: start: 20090801
  3. PALLADONE [Suspect]
     Indication: DRUG USE FOR UNKNOWN INDICATION
     Dosage: 96 MG, ONCE/DAY
  4. DULOXETINE HYDROCHLORIDE [Concomitant]
  5. LAXOBERAL (SODIUM PICOSULFATE) [Concomitant]

REACTIONS (5)
  - COMA [None]
  - CONFUSIONAL STATE [None]
  - HYPERAESTHESIA [None]
  - OVERDOSE [None]
  - RESPIRATORY FAILURE [None]
